FAERS Safety Report 11379795 (Version 1)
Quarter: 2015Q3

REPORT INFORMATION
  Report Type: Spontaneous
  Country: US (occurrence: None)
  Receive Date: 20150813
  Receipt Date: 20150813
  Transmission Date: 20151125
  Serious: No
  Sender: FDA-Public Use
  Company Number: None

PATIENT
  Age: 10 Year
  Sex: Male
  Weight: 24.49 kg

DRUGS (2)
  1. CONCERTA [Suspect]
     Active Substance: METHYLPHENIDATE HYDROCHLORIDE
     Indication: ATTENTION DEFICIT/HYPERACTIVITY DISORDER
     Dosage: 1 TAB QD  ONCE DAILY TAKEN BY MOUTH
     Route: 048
     Dates: start: 20150425, end: 20150625
  2. TENEX [Concomitant]
     Active Substance: GUANFACINE HYDROCHLORIDE

REACTIONS (9)
  - Self injurious behaviour [None]
  - Product quality issue [None]
  - Social problem [None]
  - Aggression [None]
  - Irritability [None]
  - Drug ineffective [None]
  - Product substitution issue [None]
  - Abnormal behaviour [None]
  - Anger [None]

NARRATIVE: CASE EVENT DATE: 20150625
